FAERS Safety Report 20993760 (Version 4)
Quarter: 2022Q3

REPORT INFORMATION
  Report Type: Report from Study
  Country: JP (occurrence: JP)
  Receive Date: 20220622
  Receipt Date: 20220723
  Transmission Date: 20221027
  Serious: No
  Sender: FDA-Public Use
  Company Number: JP-JNJFOC-20220633828

PATIENT
  Age: 82 Year
  Sex: Female
  Weight: 37.9 kg

DRUGS (8)
  1. DARATUMUMAB [Suspect]
     Active Substance: DARATUMUMAB
     Indication: Plasma cell myeloma
     Route: 058
     Dates: start: 20220311
  2. LENADEX [Suspect]
     Active Substance: DEXAMETHASONE ACETATE
     Indication: Plasma cell myeloma
     Route: 048
     Dates: start: 20220311, end: 20220520
  3. RISPERDAL [Concomitant]
     Active Substance: RISPERIDONE
     Indication: Delirium
     Route: 048
     Dates: start: 20220328, end: 20220425
  4. LENALIDOMIDE [Concomitant]
     Active Substance: LENALIDOMIDE
     Indication: Plasma cell myeloma
     Dosage: DOSE UNKNOWN
     Route: 048
  5. DAYVIGO [Concomitant]
     Active Substance: LEMBOREXANT
     Indication: Delirium
     Route: 065
     Dates: start: 20220319, end: 20220326
  6. DAYVIGO [Concomitant]
     Active Substance: LEMBOREXANT
     Indication: Delirium
     Route: 065
     Dates: start: 20220327, end: 20220520
  7. QUETIAPINE [Concomitant]
     Active Substance: QUETIAPINE
     Indication: Delirium
     Route: 065
     Dates: start: 20220426, end: 20220520
  8. FILGRASTIM [Concomitant]
     Active Substance: FILGRASTIM
     Indication: White blood cell count decreased
     Route: 065
     Dates: start: 20220329, end: 20220331

REACTIONS (3)
  - Delirium [Recovering/Resolving]
  - White blood cell count decreased [Recovering/Resolving]
  - Transaminases increased [Recovering/Resolving]

NARRATIVE: CASE EVENT DATE: 20220318
